FAERS Safety Report 5114120-X (Version None)
Quarter: 2006Q3

REPORT INFORMATION
  Report Type: 
  Country: None (occurrence: None)
  Receive Date: 20060925
  Receipt Date: 20060922
  Transmission Date: 20061208
  Serious: Yes (Hospitalization)
  Sender: FDA-Public Use
  Company Number: DE-GLAXOSMITHKLINE-D0050957A

PATIENT
  Age: 81 Year
  Sex: Female
  Weight: 70 kg

DRUGS (1)
  1. VALTREX [Suspect]
     Indication: HERPES ZOSTER
     Dosage: 1000MG THREE TIMES PER DAY
     Route: 048
     Dates: start: 20060718, end: 20060725

REACTIONS (5)
  - ABDOMINAL PAIN UPPER [None]
  - CHROMATURIA [None]
  - GRANULOMATOUS LIVER DISEASE [None]
  - HEPATIC ENZYME INCREASED [None]
  - HEPATOTOXICITY [None]
